FAERS Safety Report 14003425 (Version 1)
Quarter: 2017Q3

REPORT INFORMATION
  Report Type: Other
  Country: GB (occurrence: BR)
  Receive Date: 20170922
  Receipt Date: 20170922
  Transmission Date: 20171128
  Serious: Yes (Life-Threatening, Hospitalization, Other)
  Sender: FDA-Public Use
  Company Number: BR-INTERNATIONAL MEDICATION SYSTEMS, LIMITED-2027448

PATIENT
  Age: 25 Year
  Sex: Female

DRUGS (6)
  1. BUPIVACAINE 0.5%, S75:R25 WITH VASOCONSTRICTOR [Suspect]
     Active Substance: BUPIVACAINE
     Route: 008
  2. BUPIVACAINE 0.5%, S75:R25 WITH VASOCONSTRICTOR [Suspect]
     Active Substance: BUPIVACAINE
     Route: 008
  3. MORPHINE [Suspect]
     Active Substance: MORPHINE
     Indication: ANAESTHESIA
     Route: 008
  4. FENTANYL. [Suspect]
     Active Substance: FENTANYL
     Route: 042
  5. FENTANYL. [Suspect]
     Active Substance: FENTANYL
     Route: 008
  6. MIDAZOLAM [Suspect]
     Active Substance: MIDAZOLAM HYDROCHLORIDE
     Route: 042

REACTIONS (3)
  - Cardio-respiratory arrest [Recovered/Resolved]
  - Oliguria [Recovering/Resolving]
  - Pulmonary oedema [Recovering/Resolving]
